FAERS Safety Report 9157186 (Version 2)
Quarter: 2013Q2

REPORT INFORMATION
  Report Type: Spontaneous
  Country: US (occurrence: US)
  Receive Date: 20130312
  Receipt Date: 20130401
  Transmission Date: 20140414
  Serious: Yes (Other)
  Sender: FDA-Public Use
  Company Number: US-PFIZER INC-2013081146

PATIENT
  Sex: Male

DRUGS (1)
  1. ADVIL [Suspect]
     Indication: PAIN IN EXTREMITY
     Dosage: UNK, AS NEEDED
     Route: 048
     Dates: start: 201301, end: 201301

REACTIONS (3)
  - Angioedema [Recovered/Resolved]
  - Swelling [Unknown]
  - Urticaria [Recovered/Resolved]
